FAERS Safety Report 4280547-1 (Version None)
Quarter: 2004Q1

REPORT INFORMATION
  Report Type: 
  Country: None (occurrence: None)
  Receive Date: 20040128
  Receipt Date: 20040121
  Transmission Date: 20041129
  Serious: Yes (Death)
  Sender: FDA-Public Use
  Company Number: WAES 0401BEL00014

PATIENT
  Age: 61 Year
  Sex: Male
  Weight: 74 kg

DRUGS (10)
  1. AMPHOTERICIN B [Concomitant]
     Indication: ANTIFUNGAL PROPHYLAXIS
     Route: 055
     Dates: start: 20031126, end: 20031204
  2. AMPHOTERICIN B [Concomitant]
     Route: 055
     Dates: start: 20031205, end: 20031215
  3. ABELCET [Concomitant]
     Indication: RESPIRATORY TRACT INFECTION FUNGAL
     Route: 041
     Dates: start: 20031201, end: 20031205
  4. IMURAN [Concomitant]
     Indication: IMMUNOSUPPRESSION
  5. CANCIDAS [Suspect]
     Indication: RESPIRATORY TRACT INFECTION FUNGAL
     Route: 041
     Dates: start: 20031215, end: 20031215
  6. CANCIDAS [Suspect]
     Route: 041
     Dates: start: 20031216, end: 20031218
  7. NEORAL [Concomitant]
     Indication: IMMUNOSUPPRESSION
     Route: 048
  8. MEDROL [Concomitant]
     Route: 048
  9. VORICONAZOLE [Concomitant]
     Indication: RESPIRATORY TRACT INFECTION FUNGAL
     Route: 041
     Dates: start: 20031205, end: 20031205
  10. VORICONAZOLE [Concomitant]
     Route: 048
     Dates: start: 20031206, end: 20031215

REACTIONS (1)
  - MULTI-ORGAN FAILURE [None]
